FAERS Safety Report 9449728 (Version 1)
Quarter: 2013Q3

REPORT INFORMATION
  Report Type: Spontaneous
  Country: IT (occurrence: IT)
  Receive Date: 20130809
  Receipt Date: 20130809
  Transmission Date: 20140515
  Serious: Yes (Other)
  Sender: FDA-Public Use
  Company Number: IT-ACCORD-018910

PATIENT
  Age: 67 Year
  Sex: Female
  Weight: 60 kg

DRUGS (4)
  1. GEMCITABINE [Suspect]
     Indication: BLADDER CANCER
     Route: 040
     Dates: start: 20121016
  2. SOLDESAM [Concomitant]
     Route: 042
     Dates: start: 20121016, end: 20121113
  3. ONDANSETRON [Concomitant]
     Route: 042
     Dates: start: 20121016, end: 20121113
  4. RANIDIL [Concomitant]
     Route: 042
     Dates: start: 20121016, end: 20121113

REACTIONS (6)
  - Formication [Unknown]
  - Abdominal pain [Unknown]
  - Asthenia [Unknown]
  - Back pain [Unknown]
  - Diarrhoea [Unknown]
  - Off label use [Unknown]
